FAERS Safety Report 14179081 (Version 1)
Quarter: 2017Q4

REPORT INFORMATION
  Report Type: Spontaneous
  Country: AT (occurrence: AT)
  Receive Date: 20171110
  Receipt Date: 20171110
  Transmission Date: 20180321
  Serious: Yes (Other)
  Sender: FDA-Public Use
  Company Number: AT-JNJFOC-20171108010

PATIENT
  Age: 70 Year
  Sex: Female

DRUGS (7)
  1. EBETREXAT [Concomitant]
     Active Substance: METHOTREXATE SODIUM
     Route: 065
  2. SIMVASTATIN. [Concomitant]
     Active Substance: SIMVASTATIN
     Dosage: 0.5 MG /DAY
     Route: 065
  3. SIMPONI [Suspect]
     Active Substance: GOLIMUMAB
     Indication: POLYARTHRITIS
     Route: 058
     Dates: start: 201401
  4. THYREX [Concomitant]
     Active Substance: LEVOTHYROXINE SODIUM
     Dosage: 1 /DAY
     Route: 065
  5. OLEOVIT D3 [Concomitant]
     Active Substance: CHOLECALCIFEROL
     Dosage: 30 GUTTS, ONCE /WEEK
     Route: 065
  6. FOLSAN [Concomitant]
     Active Substance: FOLIC ACID
     Dosage: 0.5/DAY; NONE, WHEN EBETREXAT IS TAKEN
     Route: 065
  7. BRETARIS GENUAIR [Concomitant]
     Active Substance: ACLIDINIUM BROMIDE
     Dosage: 1 HUB, TWICE DAILY
     Route: 065

REACTIONS (4)
  - Renal cancer [Unknown]
  - Product use in unapproved indication [Unknown]
  - Lung neoplasm malignant [Unknown]
  - Off label use [Unknown]

NARRATIVE: CASE EVENT DATE: 201401
